FAERS Safety Report 8841292 (Version 2)
Quarter: 2013Q1

REPORT INFORMATION
  Report Type: Spontaneous
  Country: US (occurrence: US)
  Receive Date: 20121015
  Receipt Date: 20130128
  Transmission Date: 20140127
  Serious: Yes (Other)
  Sender: FDA-Public Use
  Company Number: US-ASTRAZENECA-2012SE77248

PATIENT
  Age: 68 Year
  Sex: Male

DRUGS (2)
  1. NEXIUM [Suspect]
     Route: 048
  2. TOPROL XL [Suspect]
     Route: 048

REACTIONS (11)
  - Myocardial infarction [Unknown]
  - Coronary artery occlusion [Unknown]
  - Diabetes mellitus [Unknown]
  - Hypertension [Unknown]
  - Blood cholesterol increased [Unknown]
  - Arthritis [Unknown]
  - Sleep apnoea syndrome [Unknown]
  - Adverse event [Unknown]
  - Depression [Unknown]
  - Gait disturbance [Unknown]
  - Gout [Unknown]
